FAERS Safety Report 23204514 (Version 1)
Quarter: 2023Q4

REPORT INFORMATION
  Report Type: Spontaneous
  Country: FR (occurrence: FR)
  Receive Date: 20231120
  Receipt Date: 20231120
  Transmission Date: 20240110
  Serious: Yes (Hospitalization, Other)
  Sender: FDA-Public Use
  Company Number: FR-SA-2023SA352816

PATIENT
  Sex: Male

DRUGS (6)
  1. ENOXAPARIN SODIUM [Suspect]
     Active Substance: ENOXAPARIN SODIUM
     Indication: Thrombosis
     Dosage: 240 IU/KG, QD (300 IU)
     Route: 042
  2. ENOXAPARIN SODIUM [Suspect]
     Active Substance: ENOXAPARIN SODIUM
     Dosage: 230 IU/KG (600 IU) DAY: 3
  3. ENOXAPARIN SODIUM [Suspect]
     Active Substance: ENOXAPARIN SODIUM
     Dosage: 270 IU/KG (750 IU) DAY 6
  4. XARELTO [Concomitant]
     Active Substance: RIVAROXABAN
     Indication: Thrombosis
     Dosage: UNK
  5. ANTITHROMBIN III HUMAN [Concomitant]
     Active Substance: ANTITHROMBIN III HUMAN
     Indication: Thrombosis
     Dosage: 100 IU/KG (300 IU FOR 1 HOUR) (WITH A TOTAL OF THREE ADMINISTRATIONS (AT D2), D17,D24)
  6. SODIUM CHLORIDE [Concomitant]
     Active Substance: SODIUM CHLORIDE
     Dosage: 6.4 ML (6.4 ML OF PHYSIOLOGICAL SALINE SO 1 ML CONTAINS 300 IU)

REACTIONS (3)
  - Colitis ulcerative [Unknown]
  - Necrotising enterocolitis neonatal [Unknown]
  - Shock haemorrhagic [Unknown]
